FAERS Safety Report 5592019-2 (Version None)
Quarter: 2008Q1

REPORT INFORMATION
  Report Type: 
  Country: None (occurrence: None)
  Receive Date: 20080115
  Receipt Date: 20070122
  Transmission Date: 20080703
  Serious: No
  Sender: FDA-Public Use
  Company Number: US-ABBOTT-06P-163-0406230-00

PATIENT
  Sex: Male
  Weight: 47.67 kg

DRUGS (4)
  1. ADVICOR [Suspect]
     Indication: LOW DENSITY LIPOPROTEIN INCREASED
     Route: 048
     Dates: start: 20060706
  2. ADVICOR [Suspect]
     Indication: LIPOPROTEIN (A) INCREASED
  3. ADVICOR [Suspect]
     Indication: BLOOD CHOLESTEROL INCREASED
  4. ADVICOR [Suspect]
     Route: 048
     Dates: start: 20060701, end: 20061101

REACTIONS (6)
  - ARTHRALGIA [None]
  - FATIGUE [None]
  - MUSCLE SPASMS [None]
  - OEDEMA PERIPHERAL [None]
  - SKIN DISCOLOURATION [None]
  - WHITE BLOOD CELL COUNT DECREASED [None]
